FAERS Safety Report 4911888-X (Version None)
Quarter: 2006Q1

REPORT INFORMATION
  Report Type: 
  Country: None (occurrence: None)
  Receive Date: 20060215
  Receipt Date: 20051202
  Transmission Date: 20060701
  Serious: Yes (Hospitalization)
  Sender: FDA-Public Use
  Company Number: PHEH2005US13144

PATIENT
  Age: 49 Year
  Sex: Male
  Weight: 81.632 kg

DRUGS (9)
  1. ZELNORM [Suspect]
     Indication: IRRITABLE BOWEL SYNDROME
     Dosage: 6 MG, BID
     Route: 048
     Dates: start: 20030101, end: 20051003
  2. NEXIUM [Concomitant]
     Dosage: 40 MG, UNK
  3. XANAX [Concomitant]
     Dosage: 2 MG, UNK
  4. NEURONTIN [Concomitant]
  5. MILK OF MAGNESIA TAB [Concomitant]
  6. LUNESTA [Concomitant]
  7. LIBRAX [Concomitant]
     Indication: IRRITABLE BOWEL SYNDROME
     Dosage: UNK, BID
  8. LEVSIN [Concomitant]
     Indication: IRRITABLE BOWEL SYNDROME
     Dosage: 0.375 UNK, UNK
  9. CHLORAL HYDRATE [Concomitant]
     Indication: SLEEP DISORDER

REACTIONS (10)
  - ABDOMINAL PAIN [None]
  - CLOSTRIDIUM COLITIS [None]
  - COLITIS ISCHAEMIC [None]
  - HAEMATOCHEZIA [None]
  - INTESTINAL ULCER [None]
  - MUCOSAL INFLAMMATION [None]
  - MUCOUS STOOLS [None]
  - NAUSEA [None]
  - OEDEMA MUCOSAL [None]
  - VOMITING [None]
